FAERS Safety Report 8425214-5 (Version None)
Quarter: 2012Q2

REPORT INFORMATION
  Report Type: 
  Country: None (occurrence: None)
  Receive Date: 20120611
  Receipt Date: 20120529
  Transmission Date: 20120825
  Serious: Yes (Other)
  Sender: FDA-Public Use
  Company Number: US-ELI_LILLY_AND_COMPANY-US201108003746

PATIENT
  Sex: Male
  Weight: 97.052 kg

DRUGS (11)
  1. COUMADIN [Concomitant]
  2. STOOL SOFTENER [Concomitant]
  3. DIGOXIN [Concomitant]
  4. FORTEO [Suspect]
     Dosage: 20 UG, QD
     Route: 065
  5. ASPIRIN [Concomitant]
  6. FORTEO [Suspect]
     Dosage: 20 UG, QD
     Route: 065
     Dates: start: 20110816
  7. PROPAFENONE HCL [Concomitant]
  8. FORTEO [Suspect]
     Indication: OSTEOPOROSIS
     Dosage: 20 UG, QD
     Route: 065
  9. ALLOPURINOL [Concomitant]
  10. NIACIN [Concomitant]
  11. LASIX [Concomitant]

REACTIONS (7)
  - GAIT DISTURBANCE [None]
  - FOOD ALLERGY [None]
  - DIARRHOEA [None]
  - ATRIAL FIBRILLATION [None]
  - MUSCLE ATROPHY [None]
  - LOSS OF CONSCIOUSNESS [None]
  - HYPOTENSION [None]
